FAERS Safety Report 25085765 (Version 1)
Quarter: 2025Q1

REPORT INFORMATION
  Report Type: Spontaneous
  Country: CH (occurrence: CH)
  Receive Date: 20250317
  Receipt Date: 20250317
  Transmission Date: 20250409
  Serious: Yes (Hospitalization, Other)
  Sender: ALEXION PHARMACEUTICALS
  Company Number: CH-ASTRAZENECA-202503GLO012266CH

PATIENT
  Age: 52 Year

DRUGS (12)
  1. QUETIAPINE FUMARATE [Suspect]
     Active Substance: QUETIAPINE FUMARATE
     Dosage: QUETIAPINE (SEQUASE XR) RET TAB 150 MG 1 TAB AT BEDTIME
  2. QUETIAPINE FUMARATE [Suspect]
     Active Substance: QUETIAPINE FUMARATE
     Dosage: QUETIAPINE (SEQUASE XR) RET TAB 150 MG 1 TAB AT BEDTIME
  3. QUETIAPINE FUMARATE [Suspect]
     Active Substance: QUETIAPINE FUMARATE
     Dosage: QUETIAPINE (SEROQUEL) PELL TAB 100 MG 1 CPR EVENING
  4. QUETIAPINE FUMARATE [Suspect]
     Active Substance: QUETIAPINE FUMARATE
     Dosage: QUETIAPINE (SEROQUEL) PELL TAB 100 MG 1 CPR EVENING
  5. XANAX [Suspect]
     Active Substance: ALPRAZOLAM
     Route: 065
  6. XANAX [Suspect]
     Active Substance: ALPRAZOLAM
     Dosage: ALPRAZOLAM (XANAX) RETARD 1 MG,1/2 TAB IN THE MORNING, 1/2 TAB AT NOON
     Route: 065
  7. XANAX [Suspect]
     Active Substance: ALPRAZOLAM
     Dosage: ALPRAZOLAM (XANAX) RETARD 1 MG,1/2 TAB IN THE MORNING, 1/2 TAB AT NOON
     Route: 065
  8. XANAX [Suspect]
     Active Substance: ALPRAZOLAM
     Route: 065
  9. FLURAZEPAM HYDROCHLORIDE [Suspect]
     Active Substance: FLURAZEPAM HYDROCHLORIDE
     Route: 065
  10. FLURAZEPAM HYDROCHLORIDE [Suspect]
     Active Substance: FLURAZEPAM HYDROCHLORIDE
     Dosage: MITE DRY TAB 15MG 1 TAB IN THE EVENING
     Route: 065
  11. VENLAFAXINE [Suspect]
     Active Substance: VENLAFAXINE HYDROCHLORIDE
  12. VENLAFAXINE [Suspect]
     Active Substance: VENLAFAXINE HYDROCHLORIDE
     Dosage: VENLAFAXINE (VENLAX ER) CAPS RET 75 MG IN THE MORNING
     Route: 065

REACTIONS (4)
  - Altered state of consciousness [Recovered/Resolved]
  - Hyperlactacidaemia [Recovered/Resolved]
  - Drug interaction [Recovered/Resolved]
  - Drug interaction [Recovered/Resolved]
